FAERS Safety Report 10306781 (Version 2)
Quarter: 2014Q1

REPORT INFORMATION
  Report Type: Spontaneous
  Country: US (occurrence: None)
  Receive Date: 20120817
  Receipt Date: 20130815
  Transmission Date: 20141002
  Serious: Yes (Hospitalization, Other)
  Sender: FDA-Public Use
  Company Number: ADR-2012-00457

PATIENT
  Sex: Male

DRUGS (2)
  1. LIORESAL INTRATHECAL [Suspect]
     Indication: MUSCLE SPASTICITY
     Dosage: 133.57MCG/DAY
  2. LIORESAL INTRATHECAL [Suspect]
     Indication: SPINAL CORD INJURY
     Dosage: 133.57MCG/DAY

REACTIONS (1)
  - Infected skin ulcer [None]
